FAERS Safety Report 14643641 (Version 1)
Quarter: 2018Q1

REPORT INFORMATION
  Report Type: Spontaneous
  Country: FI (occurrence: FI)
  Receive Date: 20180315
  Receipt Date: 20180315
  Transmission Date: 20180509
  Serious: Yes (Other)
  Sender: FDA-Public Use
  Company Number: FI-PFIZER INC-2018104067

PATIENT
  Age: 13 Year
  Sex: Male
  Weight: 73 kg

DRUGS (5)
  1. PREDNISOLONE. [Suspect]
     Active Substance: PREDNISOLONE
     Indication: TUBULOINTERSTITIAL NEPHRITIS
     Dosage: UNK
     Route: 048
     Dates: start: 20170701
  2. AMLODIPINE BESILATE [Suspect]
     Active Substance: AMLODIPINE BESYLATE
     Indication: TUBULOINTERSTITIAL NEPHRITIS
     Dosage: UNK
     Route: 065
     Dates: start: 20170101
  3. HUMIRA [Suspect]
     Active Substance: ADALIMUMAB
     Indication: CROHN^S DISEASE
     Dosage: 40 MG, UNK
     Route: 058
     Dates: start: 20170327, end: 20170601
  4. CORTIMENT /00614601/ [Concomitant]
     Indication: CROHN^S DISEASE
     Dosage: UNK
     Dates: end: 20170701
  5. PENTASA [Concomitant]
     Active Substance: MESALAMINE
     Indication: CROHN^S DISEASE
     Dosage: 3 G, UNK
     Route: 048
     Dates: end: 20170601

REACTIONS (9)
  - Drug specific antibody [Unknown]
  - Red blood cell sedimentation rate abnormal [Recovered/Resolved]
  - Blood creatinine increased [Recovering/Resolving]
  - Renal failure [Recovering/Resolving]
  - Haemoglobin decreased [Recovering/Resolving]
  - Drug level changed [Unknown]
  - Renal tubular injury [Recovering/Resolving]
  - Blood pressure increased [Unknown]
  - Drug ineffective [Recovering/Resolving]

NARRATIVE: CASE EVENT DATE: 20170101
